FAERS Safety Report 26045870 (Version 1)
Quarter: 2025Q4

REPORT INFORMATION
  Report Type: Spontaneous
  Country: IL (occurrence: IL)
  Receive Date: 20251114
  Receipt Date: 20251114
  Transmission Date: 20260118
  Serious: Yes (Other)
  Sender: RANBAXY
  Company Number: IL-SUN PHARMACEUTICAL INDUSTRIES INC-2025R1-535344

PATIENT
  Age: 51 Year
  Sex: Female

DRUGS (1)
  1. ETODOLAC [Suspect]
     Active Substance: ETODOLAC
     Indication: Arthralgia
     Dosage: 400 MILLIGRAM, QD
     Route: 048
     Dates: start: 20250825

REACTIONS (6)
  - Constipation [Unknown]
  - Faeces hard [Unknown]
  - Gastrointestinal disorder [Unknown]
  - Abdominal distension [Unknown]
  - Abdominal pain [Unknown]
  - Dyspepsia [Unknown]
